FAERS Safety Report 4584728-9 (Version None)
Quarter: 2005Q1

REPORT INFORMATION
  Report Type: 
  Country: None (occurrence: None)
  Receive Date: 20050214
  Receipt Date: 20040913
  Transmission Date: 20050727
  Serious: Yes (Hospitalization)
  Sender: FDA-Public Use
  Company Number: 05-048

PATIENT
  Age: 81 Year
  Sex: Female

DRUGS (9)
  1. DEXAMETHASONE [Suspect]
     Indication: MYELOMA RECURRENCE
     Dates: start: 20010112, end: 20011115
  2. DEXAMETHASONE [Suspect]
     Indication: MYELOMA RECURRENCE
     Dates: start: 20011119, end: 20011122
  3. EPOETIN ALPHA [Concomitant]
  4. AMLODIPINE BESYLATE [Concomitant]
  5. PROPOXYPHENE HCL [Concomitant]
  6. TRIMETHOPRIM-SULFAMETHOXAZOLE [Concomitant]
  7. PAMIDRONATE DISODIUM [Concomitant]
  8. FAMOTIDINE [Concomitant]
  9. MULTI-VITAMIN [Concomitant]

REACTIONS (6)
  - CONTUSION [None]
  - FATIGUE [None]
  - HAEMOGLOBIN DECREASED [None]
  - IMPLANT SITE PAIN [None]
  - IMPLANT SITE REACTION [None]
  - PLATELET COUNT DECREASED [None]
